FAERS Safety Report 16358185 (Version 1)
Quarter: 2019Q2

REPORT INFORMATION
  Report Type: Spontaneous
  Country: DE (occurrence: DE)
  Receive Date: 20190527
  Receipt Date: 20190527
  Transmission Date: 20190711
  Serious: Yes (Death, Life-Threatening)
  Sender: FDA-Public Use
  Company Number: DE-ALLERGAN-1921546US

PATIENT
  Sex: Male

DRUGS (51)
  1. GANCICLOVIR. [Suspect]
     Active Substance: GANCICLOVIR
     Indication: ILL-DEFINED DISORDER
     Dosage: 225 MG, BID
     Route: 042
     Dates: start: 19981127, end: 19990101
  2. AMBISOME LYOPHILISIERTES [Suspect]
     Active Substance: AMPHOTERICIN B\CHOLESTEROL
     Indication: ILL-DEFINED DISORDER
     Dosage: 300 MG, UNK
     Route: 042
     Dates: start: 19981122, end: 19990101
  3. PEPDUL [Concomitant]
     Active Substance: FAMOTIDINE
     Dates: end: 19981110
  4. GENTAMICIN SULFATE 0.3% SOL (176F) [Suspect]
     Active Substance: GENTAMICIN SULFATE
     Indication: CONJUNCTIVITIS
     Route: 047
     Dates: start: 19981129, end: 19981129
  5. PREDNISOLONE. [Suspect]
     Active Substance: PREDNISOLONE
     Indication: ILL-DEFINED DISORDER
     Route: 061
     Dates: start: 19981204, end: 19990101
  6. ASCORBIC ACID. [Concomitant]
     Active Substance: ASCORBIC ACID
  7. MORPHINE [Concomitant]
     Active Substance: MORPHINE
     Dates: start: 19981111, end: 19981123
  8. ANTRA [Concomitant]
     Active Substance: OMEPRAZOLE
  9. CLONT [Concomitant]
  10. DEXTROSE. [Concomitant]
     Active Substance: DEXTROSE
  11. PREDNISOLONE. [Concomitant]
     Active Substance: PREDNISOLONE
     Dates: start: 19981119, end: 19981121
  12. VOMEX A [Suspect]
     Active Substance: DIMENHYDRINATE
     Indication: ILL-DEFINED DISORDER
     Route: 042
     Dates: start: 19981118, end: 19981130
  13. REMERON [Suspect]
     Active Substance: MIRTAZAPINE
     Indication: ILL-DEFINED DISORDER
     Route: 048
     Dates: start: 19981126, end: 19981203
  14. CIPROFLOXACIN HYDROCHLORIDE. [Suspect]
     Active Substance: CIPROFLOXACIN HYDROCHLORIDE
     Indication: CYSTITIS
     Dosage: 400 MG, QD
     Route: 042
     Dates: start: 19981130, end: 19981208
  15. DOPAMINE HYDROCHLORIDE. [Suspect]
     Active Substance: DOPAMINE HYDROCHLORIDE
     Indication: ILL-DEFINED DISORDER
     Route: 042
     Dates: start: 19981119, end: 19990101
  16. LENOGRASTIM [Concomitant]
     Active Substance: LENOGRASTIM
     Dates: end: 19981128
  17. TARIVID [Concomitant]
     Active Substance: OFLOXACIN
     Dates: end: 19981110
  18. SANDIMMUN [Concomitant]
     Active Substance: CYCLOSPORINE
  19. AMINO ACIDS NOS;MINERALS NOS [Concomitant]
     Dates: start: 19981013
  20. K-DUR [Concomitant]
     Active Substance: POTASSIUM CHLORIDE
  21. NEUPOGEN [Suspect]
     Active Substance: FILGRASTIM
     Indication: COMPLICATIONS OF BONE MARROW TRANSPLANT
     Dosage: 480 ?G, QD
     Route: 042
     Dates: start: 19981127, end: 19981130
  22. FORTUM [Suspect]
     Active Substance: CEFTAZIDIME
     Indication: ILL-DEFINED DISORDER
     Dosage: 2 G, QD
     Route: 042
     Dates: start: 19981111, end: 19981205
  23. RESONIUM A [Suspect]
     Active Substance: SODIUM POLYSTYRENE SULFONATE
     Indication: ILL-DEFINED DISORDER
     Dosage: 30 G, UNK
     Route: 048
     Dates: start: 19981129, end: 19981129
  24. MAGNESIUM [Concomitant]
     Active Substance: MAGNESIUM
     Dates: end: 19981202
  25. SODIUM BICARBONATE. [Concomitant]
     Active Substance: SODIUM BICARBONATE
     Dates: start: 19981201, end: 19981206
  26. AMPHO MORONAL [Concomitant]
     Active Substance: AMPHOTERICIN B
     Dates: end: 19981122
  27. GLOBULIN V [Concomitant]
     Dates: start: 19981115, end: 19981126
  28. DIFLUCAN [Suspect]
     Active Substance: FLUCONAZOLE
     Indication: ILL-DEFINED DISORDER
     Dosage: 200 MG, QD
     Route: 042
     Dates: end: 19981119
  29. COTRIMOXAZOLE [Suspect]
     Active Substance: SULFAMETHOXAZOLE\TRIMETHOPRIM
     Indication: ILL-DEFINED DISORDER
     Dates: start: 19981113, end: 19981206
  30. ACETYLCYSTEINE. [Concomitant]
     Active Substance: ACETYLCYSTEINE
     Dates: start: 19981117, end: 19981119
  31. AMINO ACIDS NOS;CARBOHYDRATES NOS;FATS NOS [Concomitant]
     Dates: end: 19981129
  32. CALCIUM [Concomitant]
     Active Substance: CALCIUM
  33. PHENYLEPHRINE HYDROCHLORIDE. [Concomitant]
     Active Substance: PHENYLEPHRINE HYDROCHLORIDE
     Dates: start: 19981113
  34. ACICLOVIR [Concomitant]
     Active Substance: ACYCLOVIR
  35. METHOTREXATE. [Concomitant]
     Active Substance: METHOTREXATE
     Dates: start: 19981111, end: 19981111
  36. VANCOMYCIN [Concomitant]
     Active Substance: VANCOMYCIN
     Dates: start: 19981111
  37. TAVEGIL [Concomitant]
     Active Substance: CLEMASTINE FUMARATE
     Dates: start: 19981118, end: 19981121
  38. DOLANTIN [Concomitant]
     Active Substance: MEPERIDINE
     Dates: start: 19981111, end: 19981121
  39. AMPHOTERICIN B. [Concomitant]
     Active Substance: AMPHOTERICIN B
     Dates: start: 19981117, end: 19981121
  40. KONAKION [Suspect]
     Active Substance: PHYTONADIONE
     Indication: ILL-DEFINED DISORDER
     Dosage: 10 MG, QD
     Route: 042
     Dates: end: 19981207
  41. FUROSEMIDE. [Suspect]
     Active Substance: FUROSEMIDE
     Indication: ILL-DEFINED DISORDER
     Dosage: 10 MG, QD
     Route: 042
     Dates: start: 19981013
  42. METHYLPREDNISOLONE. [Suspect]
     Active Substance: METHYLPREDNISOLONE
     Indication: ILL-DEFINED DISORDER
     Dosage: 64 MG, UNK
     Route: 042
     Dates: start: 19981121, end: 19990101
  43. LASIX [Suspect]
     Active Substance: FUROSEMIDE
     Indication: ILL-DEFINED DISORDER
     Dosage: 40 MG, UNK
     Route: 042
     Dates: start: 19981126, end: 19981126
  44. TOBRAMYCIN. [Suspect]
     Active Substance: TOBRAMYCIN
     Indication: ILL-DEFINED DISORDER
     Dosage: 520 MG, QD
     Route: 042
     Dates: start: 19981114, end: 19981121
  45. TAVOR [Concomitant]
     Indication: ILL-DEFINED DISORDER
     Dosage: 1 MG, BID
     Route: 042
     Dates: end: 19981125
  46. AQUAPHOR [Concomitant]
     Active Substance: PETROLATUM
     Route: 048
     Dates: start: 19981120, end: 19981120
  47. METAMIZOLE [Suspect]
     Active Substance: METAMIZOLE
     Indication: ILL-DEFINED DISORDER
     Dosage: 1 G, QD
     Route: 042
     Dates: start: 19981111
  48. ZIENAM [Suspect]
     Active Substance: CILASTATIN SODIUM\IMIPENEM
     Indication: ILL-DEFINED DISORDER
     Dosage: 500 MG, BID
     Route: 042
     Dates: start: 19981120, end: 19990101
  49. INSULIN HUMAN [Concomitant]
     Active Substance: INSULIN HUMAN
     Dates: start: 19981115, end: 19981207
  50. ALPROSTADIL. [Concomitant]
     Active Substance: ALPROSTADIL
     Dates: start: 19981111, end: 19981119
  51. INTRALIPID [Concomitant]
     Active Substance: EGG PHOSPHOLIPIDS\GLYCERIN\SOYBEAN OIL

REACTIONS (1)
  - Toxic epidermal necrolysis [Fatal]

NARRATIVE: CASE EVENT DATE: 19981208
